FAERS Safety Report 6330199-1 (Version None)
Quarter: 2009Q3

REPORT INFORMATION
  Report Type: 
  Country: None (occurrence: None)
  Receive Date: 20090827
  Receipt Date: 20090817
  Transmission Date: 20100115
  Serious: Yes (Life-Threatening, Other)
  Sender: FDA-Public Use
  Company Number: CZ-RANBAXY-2009RR-26064

PATIENT
  Age: 68 Year
  Sex: Female

DRUGS (9)
  1. MIDAZOLAM HCL [Suspect]
     Indication: GENERAL ANAESTHESIA
  2. SUFENTANIL [Suspect]
     Indication: GENERAL ANAESTHESIA
  3. PROPOFOL [Suspect]
     Indication: GENERAL ANAESTHESIA
  4. ROCURONIUM BROMIDE [Suspect]
     Indication: GENERAL ANAESTHESIA
     Dosage: 50 MG, UNK
  5. BRAUNODERM [Suspect]
  6. LEVOTHYROXINE SODIUM [Concomitant]
  7. GLICLAZIDE [Concomitant]
  8. ENALAPRIL MALEATE [Concomitant]
  9. SORBITER DURULENS [Concomitant]

REACTIONS (1)
  - ANAPHYLACTIC REACTION [None]
